FAERS Safety Report 6572313-9 (Version None)
Quarter: 2010Q1

REPORT INFORMATION
  Report Type: 
  Country: None (occurrence: None)
  Receive Date: 20100205
  Receipt Date: 20100125
  Transmission Date: 20100710
  Serious: Yes (Other)
  Sender: FDA-Public Use
  Company Number: US-WATSON-2010-01076

PATIENT
  Age: 81 Year
  Sex: Female

DRUGS (1)
  1. CEFAZOLIN SODIUM                   09 [Suspect]
     Indication: PANCREATITIS
     Dosage: UNK
     Route: 042

REACTIONS (2)
  - HYPERSENSITIVITY [None]
  - STRESS CARDIOMYOPATHY [None]
